FAERS Safety Report 10234164 (Version 1)
Quarter: 2014Q2

REPORT INFORMATION
  Report Type: Spontaneous
  Country: NL (occurrence: NL)
  Receive Date: 20140612
  Receipt Date: 20140612
  Transmission Date: 20141212
  Serious: Yes (Hospitalization)
  Sender: FDA-Public Use
  Company Number: NL-GLAXOSMITHKLINE-B1001932A

PATIENT
  Age: 75 Year
  Sex: Male
  Weight: 82 kg

DRUGS (1)
  1. COMBODART [Suspect]
     Indication: PROSTATOMEGALY
     Route: 048
     Dates: start: 20140225, end: 20140325

REACTIONS (4)
  - Cerebral infarction [Recovering/Resolving]
  - Visual impairment [Recovering/Resolving]
  - Visual impairment [Recovering/Resolving]
  - Dizziness [Recovering/Resolving]
